FAERS Safety Report 9478857 (Version 2)
Quarter: 2013Q3

REPORT INFORMATION
  Report Type: Report from Study
  Country: AR (occurrence: AR)
  Receive Date: 20130827
  Receipt Date: 20130919
  Transmission Date: 20140515
  Serious: Yes (Hospitalization)
  Sender: FDA-Public Use
  Company Number: PHHY2012AR129071

PATIENT
  Age: 72 Year
  Sex: Female

DRUGS (5)
  1. DIOVAN D [Suspect]
     Indication: BLOOD PRESSURE ABNORMAL
     Dosage: 1 DF  (VALS 160 MG / HYDR 12.5 MG), BID
     Route: 048
     Dates: end: 201211
  2. BISOPROLOL [Concomitant]
     Dosage: UNK UKN, UNK
  3. AMLODIPINE [Concomitant]
     Dosage: UNK UKN, UNK
  4. METHYLDOPA [Concomitant]
     Dosage: UNK UKN, UNK
  5. ALPRAZOLAM [Concomitant]
     Dosage: UNK UKN, UNK

REACTIONS (3)
  - Parathyroid disorder [Recovered/Resolved]
  - Blood calcium decreased [Recovered/Resolved]
  - Blood pressure increased [Recovered/Resolved]
